FAERS Safety Report 4268115-9 (Version None)
Quarter: 2004Q1

REPORT INFORMATION
  Report Type: 
  Country: None (occurrence: None)
  Receive Date: 20040109
  Receipt Date: 20040109
  Transmission Date: 20041129
  Serious: No
  Sender: FDA-Public Use
  Company Number: None

PATIENT
  Age: 27 Year
  Sex: Female
  Weight: 72.5755 kg

DRUGS (1)
  1. ACCUTANE [Suspect]
     Indication: ACNE
     Dosage: 40 MG TWICE DAILY ORAL
     Route: 048
     Dates: start: 20030501, end: 20030829

REACTIONS (1)
  - BENIGN INTRACRANIAL HYPERTENSION [None]
